FAERS Safety Report 7553645-4 (Version None)
Quarter: 2011Q2

REPORT INFORMATION
  Report Type: 
  Country: None (occurrence: None)
  Receive Date: 20110617
  Receipt Date: 20100922
  Transmission Date: 20111010
  Serious: No
  Sender: FDA-Public Use
  Company Number: US-MYLANLABS-2010S1017561

PATIENT
  Sex: Female

DRUGS (4)
  1. OMEPRAZOLE [Suspect]
     Indication: GASTROOESOPHAGEAL REFLUX DISEASE
     Route: 048
     Dates: start: 20060101
  2. FISH OIL [Concomitant]
  3. GLUCOSAMINE [Concomitant]
  4. VITAMIN TAB [Concomitant]

REACTIONS (4)
  - HYPERHIDROSIS [None]
  - PARAESTHESIA [None]
  - FLATULENCE [None]
  - ALOPECIA [None]
